FAERS Safety Report 5667820-7 (Version None)
Quarter: 2008Q1

REPORT INFORMATION
  Report Type: 
  Country: None (occurrence: None)
  Receive Date: 20080315
  Receipt Date: 20080205
  Transmission Date: 20080703
  Serious: No
  Sender: FDA-Public Use
  Company Number: US-ABBOTT-08P-163-0437083-00

PATIENT
  Sex: Female
  Weight: 59.02 kg

DRUGS (7)
  1. HUMIRA [Suspect]
     Indication: RHEUMATOID ARTHRITIS
     Route: 058
     Dates: start: 20031201, end: 20070501
  2. HUMIRA [Suspect]
     Route: 058
     Dates: start: 20070501, end: 20071001
  3. HUMIRA [Suspect]
     Route: 058
  4. CORTISOL INJECTION IN BACK [Concomitant]
     Indication: ARTHRALGIA
     Route: 050
  5. METHOTREXATE [Concomitant]
     Indication: RHEUMATOID ARTHRITIS
     Route: 048
  6. PREDNISONE [Concomitant]
     Indication: RHEUMATOID ARTHRITIS
     Route: 048
  7. PERCOCET [Concomitant]
     Indication: ARTHRALGIA
     Route: 048

REACTIONS (2)
  - BLOOD URINE PRESENT [None]
  - FUNGAL INFECTION [None]
